FAERS Safety Report 24162122 (Version 1)
Quarter: 2024Q3

REPORT INFORMATION
  Report Type: Spontaneous
  Country: US (occurrence: None)
  Receive Date: 20240731
  Receipt Date: 20240731
  Transmission Date: 20241016
  Serious: No
  Sender: Public
  Company Number: None

PATIENT
  Sex: 0

DRUGS (1)
  1. ROSUVASTATIN [Suspect]
     Active Substance: ROSUVASTATIN\ROSUVASTATIN CALCIUM

REACTIONS (6)
  - Pain [None]
  - Depression [None]
  - Myalgia [None]
  - Insomnia [None]
  - Nightmare [None]
  - Feeling abnormal [None]
